FAERS Safety Report 7502684-8 (Version None)
Quarter: 2011Q2

REPORT INFORMATION
  Report Type: 
  Country: None (occurrence: None)
  Receive Date: 20110525
  Receipt Date: 20110512
  Transmission Date: 20111010
  Serious: Yes (Hospitalization)
  Sender: FDA-Public Use
  Company Number: PHHO2011DK06139

PATIENT
  Sex: Male
  Weight: 100 kg

DRUGS (15)
  1. BLINDED NO TREATMENT RECEIVED [Suspect]
     Indication: MULTIPLE MYELOMA
     Dosage: DOUBLE BLIND
     Route: 048
     Dates: start: 20110321
  2. SIMVASTATIN [Concomitant]
     Indication: PROPHYLAXIS
     Dosage: 40 MG, QD
     Dates: start: 20110211
  3. PAMIDRONATE DISODIUM [Concomitant]
     Dosage: UNK
     Dates: start: 20100531
  4. BLINDED FORTECORTIN [Suspect]
     Indication: MULTIPLE MYELOMA
     Dosage: DOUBLE BLIND
     Route: 048
     Dates: start: 20110321
  5. COMPARATOR FORTECORTIN [Suspect]
     Indication: MULTIPLE MYELOMA
     Dosage: DOUBLE BLIND
     Route: 048
     Dates: start: 20110321
  6. BLINDED LBH589 [Suspect]
     Indication: MULTIPLE MYELOMA
     Dosage: DOUBLE BLIND
     Route: 048
     Dates: start: 20110321
  7. BORTEZOMIB [Suspect]
     Indication: MULTIPLE MYELOMA
     Dosage: DOUBLE BLIND
     Route: 042
     Dates: start: 20110321
  8. DIOVAN [Suspect]
     Dosage: 125 MG, QD
     Route: 048
     Dates: start: 20110211
  9. PLACEBO [Suspect]
     Indication: MULTIPLE MYELOMA
     Dosage: DOUBLE BLIND
     Route: 048
     Dates: start: 20110321
  10. VELCADE [Suspect]
     Indication: MULTIPLE MYELOMA
     Dosage: DOUBLE BLIND
     Route: 048
     Dates: start: 20110321
  11. LOSARTAN POTASSIUM [Concomitant]
  12. FUROSEMIDE [Concomitant]
     Indication: HYPERTENSION
     Dosage: UNK
     Dates: start: 20110509
  13. TRAMADOL HCL [Concomitant]
     Indication: BACK PAIN
     Dosage: UNK
     Dates: start: 20100211
  14. CENTYL MED KALIUMKLORID [Concomitant]
     Indication: HYPERTENSION
     Dosage: 5 MG, QD
     Route: 048
     Dates: start: 20110211
  15. PAMOL [Concomitant]
     Indication: BACK PAIN
     Dosage: 500 MG, QID
     Route: 048
     Dates: start: 20110211

REACTIONS (5)
  - CONCOMITANT DISEASE PROGRESSION [None]
  - FATIGUE [None]
  - HYPOTENSION [None]
  - DIZZINESS POSTURAL [None]
  - CEREBROVASCULAR ACCIDENT [None]
